FAERS Safety Report 6311855-8 (Version None)
Quarter: 2009Q3

REPORT INFORMATION
  Report Type: 
  Country: None (occurrence: None)
  Receive Date: 20090817
  Receipt Date: 20090810
  Transmission Date: 20100115
  Serious: Yes (Other)
  Sender: FDA-Public Use
  Company Number: JP-BRISTOL-MYERS SQUIBB COMPANY-14735070

PATIENT
  Age: 66 Year
  Sex: Female

DRUGS (2)
  1. CYCLOPHOSPHAMIDE [Suspect]
     Indication: BREAST CANCER
     Dosage: RECEIVED 3 INF
     Route: 058
  2. ADRIAMYCIN PFS [Suspect]
     Indication: BREAST CANCER
     Dosage: RECEIVED 3 INF
     Route: 058

REACTIONS (1)
  - PHLEBOSCLEROSIS [None]
